FAERS Safety Report 15001147 (Version 1)
Quarter: 2018Q2

REPORT INFORMATION
  Report Type: Spontaneous
  Country: US (occurrence: US)
  Receive Date: 20180523
  Receipt Date: 20180523
  Transmission Date: 20180711
  Serious: Yes (Other)
  Sender: FDA-Public Use
  Company Number: None

PATIENT
  Age: 38 Year
  Sex: Female
  Weight: 74.25 kg

DRUGS (4)
  1. EXCEDRIN [Concomitant]
     Active Substance: ACETAMINOPHEN\ASPIRIN\CAFFEINE
  2. NAPROXIN SODIUM [Concomitant]
  3. METHYLPHENIDATE ER 54 MG TAB [Suspect]
     Active Substance: METHYLPHENIDATE HYDROCHLORIDE
     Indication: ATTENTION DEFICIT/HYPERACTIVITY DISORDER
     Dosage: ?          QUANTITY:30 TABLET(S);?
     Route: 048
  4. CONCERTA [Concomitant]
     Active Substance: METHYLPHENIDATE HYDROCHLORIDE

REACTIONS (6)
  - Drug ineffective [None]
  - Insurance issue [None]
  - Obsessive-compulsive disorder [None]
  - Speech disorder [None]
  - Disturbance in attention [None]
  - Product substitution issue [None]

NARRATIVE: CASE EVENT DATE: 20180416
